FAERS Safety Report 9124645 (Version 2)
Quarter: 2013Q1

REPORT INFORMATION
  Report Type: Spontaneous
  Country: GB (occurrence: GB)
  Receive Date: 20130116
  Receipt Date: 20130311
  Transmission Date: 20140127
  Serious: Yes (Other)
  Sender: FDA-Public Use
  Company Number: PHFR2013GB000592

PATIENT
  Age: 50 Year
  Sex: Female

DRUGS (2)
  1. ZOLEDRONIC ACID [Suspect]
     Indication: BONE DISORDER
     Dosage: 4 MG, UNK
     Route: 042
     Dates: start: 201011, end: 201112
  2. LETROZOLE [Concomitant]
     Indication: BREAST CANCER
     Dosage: 2.5 MG, DAILY
     Route: 048
     Dates: start: 201010, end: 201210

REACTIONS (1)
  - Osteonecrosis of jaw [Not Recovered/Not Resolved]
